FAERS Safety Report 8958471 (Version 1)
Quarter: 2012Q4

REPORT INFORMATION
  Report Type: Spontaneous
  Country: US (occurrence: None)
  Receive Date: 20121205
  Receipt Date: 20121205
  Transmission Date: 20130627
  Serious: Yes (Hospitalization)
  Sender: FDA-Public Use
  Company Number: None

PATIENT
  Age: 64 Year
  Sex: Male
  Weight: 101 kg

DRUGS (2)
  1. METOPROLOL [Suspect]
     Indication: CORONARY ARTERY DISEASE
     Route: 048
     Dates: start: 20071101, end: 20110826
  2. AMLODIPINE [Suspect]
     Indication: HYPERTENSION
     Dosage: ML, BID, PO
     Route: 048
     Dates: start: 20110428, end: 20110826

REACTIONS (2)
  - Dizziness [None]
  - Bradycardia [None]
